FAERS Safety Report 8355942-1 (Version None)
Quarter: 2012Q2

REPORT INFORMATION
  Report Type: 
  Country: None (occurrence: None)
  Receive Date: 20120511
  Receipt Date: 20120511
  Transmission Date: 20120825
  Serious: Yes (Other)
  Sender: FDA-Public Use
  Company Number: None

PATIENT
  Age: 4 Year
  Sex: Female
  Weight: 19.0511 kg

DRUGS (1)
  1. SHEER DRY-TOUCH SUNSCREEN WALGREENS [Suspect]
     Indication: PROPHYLAXIS AGAINST SOLAR RADIATION
     Dates: start: 20120505, end: 20120505

REACTIONS (1)
  - APPLICATION SITE RASH [None]
